FAERS Safety Report 19581481 (Version 1)
Quarter: 2021Q3

REPORT INFORMATION
  Report Type: Spontaneous
  Country: UZ (occurrence: UZ)
  Receive Date: 20210720
  Receipt Date: 20210720
  Transmission Date: 20211014
  Serious: Yes (Other)
  Sender: FDA-Public Use
  Company Number: NVSC2021UZ155446

PATIENT
  Sex: Female

DRUGS (1)
  1. SCAPHO [Suspect]
     Active Substance: SECUKINUMAB
     Indication: PSORIASIS
     Dosage: 300 MG (IN 150 MG SEPARATELY) FREQUENCY  2
     Route: 058

REACTIONS (5)
  - Fatigue [Unknown]
  - Swelling [Unknown]
  - Asthenia [Unknown]
  - Pain [Unknown]
  - Musculoskeletal stiffness [Unknown]
